FAERS Safety Report 19350208 (Version 1)
Quarter: 2021Q2

REPORT INFORMATION
  Report Type: Spontaneous
  Country: US (occurrence: US)
  Receive Date: 20210526
  Receipt Date: 20210526
  Transmission Date: 20210717
  Serious: Yes (Life-Threatening, Hospitalization, Disabling, Congenital Anomaly)
  Sender: FDA-Public Use
  Company Number: None

PATIENT
  Age: 36 Year
  Sex: Male
  Weight: 90.72 kg

DRUGS (1)
  1. EXTENZE PLUS [Suspect]
     Active Substance: DIETARY SUPPLEMENT

REACTIONS (6)
  - Heart rate decreased [None]
  - Confusional state [None]
  - Dizziness [None]
  - Hyperhidrosis [None]
  - Asthenia [None]
  - Tremor [None]

NARRATIVE: CASE EVENT DATE: 20210522
